FAERS Safety Report 7702333-X (Version None)
Quarter: 2011Q3

REPORT INFORMATION
  Report Type: 
  Country: None (occurrence: None)
  Receive Date: 20110822
  Receipt Date: 20110816
  Transmission Date: 20111222
  Serious: Yes (Death, Hospitalization)
  Sender: FDA-Public Use
  Company Number: PHHY2011FR74125

PATIENT
  Age: 26 Year
  Sex: Male

DRUGS (5)
  1. CANNABIS [Concomitant]
     Dosage: UNK UKN, UNK
  2. METHADONE HYDROCHLORIDE [Suspect]
     Indication: PAIN
     Dosage: 60 MG/DAY
  3. COCAINE [Concomitant]
     Dosage: UNK UKN, UNK
  4. ZUCLOPENTHIXOL [Concomitant]
     Dosage: UNK UKN, UNK
  5. LEVOMEPROMAZINE [Concomitant]
     Dosage: UNK UKN, UNK

REACTIONS (2)
  - SUDDEN DEATH [None]
  - SCHIZOPHRENIA [None]
